FAERS Safety Report 7396153-6 (Version None)
Quarter: 2011Q2

REPORT INFORMATION
  Report Type: 
  Country: None (occurrence: None)
  Receive Date: 20110301
  Receipt Date: 20101122
  Transmission Date: 20111010
  Serious: Yes (Other)
  Sender: FDA-Public Use
  Company Number: 2211100-US-JNJFOC-20101108433

PATIENT
  Age: 15 Year
  Sex: Female
  Weight: 63.5036 kg

DRUGS (3)
  1. JUNIOR STRENGTH MOTRIN [Suspect]
     Indication: ANALGESIC THERAPY
     Dosage: 100 MG, 1 IN 1 TOTAL, ORAL
     Route: 048
     Dates: start: 20101122, end: 20101122
  2. ADRENERGICS, INHALANTS [Concomitant]
  3. PRILOSEC [Concomitant]

REACTIONS (2)
  - PRODUCT QUALITY ISSUE [None]
  - ANAPHYLACTIC REACTION [None]
